FAERS Safety Report 9416592 (Version 1)
Quarter: 2013Q3

REPORT INFORMATION
  Report Type: Report from Study
  Country: ID (occurrence: ID)
  Receive Date: 20130724
  Receipt Date: 20130724
  Transmission Date: 20140515
  Serious: Yes (Death)
  Sender: FDA-Public Use
  Company Number: ID-ROCHE-1252571

PATIENT
  Age: 53 Year
  Sex: Female
  Weight: 64 kg

DRUGS (2)
  1. AVASTIN [Suspect]
     Indication: OVARIAN CANCER METASTATIC
     Dosage: LAST CYCLE WAS ON 11-OCT-2012
     Route: 042
     Dates: start: 20120705
  2. PACLITAXEL [Concomitant]
     Indication: OVARIAN CANCER METASTATIC

REACTIONS (1)
  - Death [Fatal]
